FAERS Safety Report 18144452 (Version 1)
Quarter: 2020Q3

REPORT INFORMATION
  Report Type: Spontaneous
  Country: US (occurrence: US)
  Receive Date: 20200812
  Receipt Date: 20200812
  Transmission Date: 20201103
  Serious: No
  Sender: FDA-Public Use
  Company Number: None

PATIENT
  Age: 61 Year
  Sex: Female
  Weight: 61.2 kg

DRUGS (6)
  1. VITAMING B?COMPLEX [Concomitant]
  2. JOINT HEALTH SUPPLEMENT [Concomitant]
  3. EMGALITY [Suspect]
     Active Substance: GALCANEZUMAB-GNLM
     Indication: MIGRAINE WITH AURA
     Dosage: ?          QUANTITY:1 INJECTION(S);OTHER FREQUENCY:ONCE A MONTH;?
     Route: 058
     Dates: start: 20191018
  4. VIVISCAL [Concomitant]
  5. VITAMIN D3 [Concomitant]
     Active Substance: CHOLECALCIFEROL
  6. ZINC. [Concomitant]
     Active Substance: ZINC

REACTIONS (5)
  - Weight increased [None]
  - Fatigue [None]
  - Constipation [None]
  - Oedema [None]
  - Arthralgia [None]

NARRATIVE: CASE EVENT DATE: 20200812
